FAERS Safety Report 8772435 (Version 2)
Quarter: 2013Q2

REPORT INFORMATION
  Report Type: Spontaneous
  Country: DE (occurrence: DE)
  Receive Date: 20120905
  Receipt Date: 20130520
  Transmission Date: 20140414
  Serious: Yes (Other)
  Sender: FDA-Public Use
  Company Number: DE-B.I. PHARMACEUTICALS,INC./RIDGEFIELD-2012-BP-21390YA

PATIENT
  Age: 60 Year
  Sex: Male
  Weight: 84 kg

DRUGS (6)
  1. TAMSULOSINA [Suspect]
     Indication: MICTURITION DISORDER
     Dosage: 0.4 MG
     Route: 048
     Dates: start: 201202
  2. SULPRIDE [Suspect]
     Route: 065
  3. PANTOPRAZOL (PANTOPRAZOLE SODIUM SESQUIHYDRATE) [Concomitant]
     Indication: GASTROOESOPHAGEAL REFLUX DISEASE
     Dosage: 40 MG
     Route: 048
     Dates: start: 2010
  4. QUILONIUM R (LITHIUM CARBONATE) [Concomitant]
     Indication: CYCLOTHYMIC DISORDER
     Route: 048
     Dates: start: 2006
  5. VENLAFAXINE (VENLAFAXINE) [Concomitant]
     Indication: DEPRESSION
     Dosage: 225 MG
     Route: 048
     Dates: start: 2004
  6. MIRTAZAPIN (MIRTAZAPINE) [Concomitant]
     Indication: DEPRESSION
     Dosage: 45 MG
     Route: 048
     Dates: start: 2010

REACTIONS (1)
  - Haematoma [Not Recovered/Not Resolved]
